FAERS Safety Report 15108230 (Version 2)
Quarter: 2018Q4

REPORT INFORMATION
  Report Type: Report from Study
  Country: US (occurrence: US)
  Receive Date: 20180705
  Receipt Date: 20181129
  Transmission Date: 20190204
  Serious: No
  Sender: FDA-Public Use
  Company Number: US-ROCHE-2147067

PATIENT
  Sex: Female

DRUGS (5)
  1. BUPROPION. [Concomitant]
     Active Substance: BUPROPION
     Route: 065
  2. VALACYCLOVIR [Concomitant]
     Active Substance: VALACYCLOVIR HYDROCHLORIDE
  3. FLAXSEED [Concomitant]
     Active Substance: FLAX SEED
  4. OCREVUS [Suspect]
     Active Substance: OCRELIZUMAB
     Indication: RELAPSING MULTIPLE SCLEROSIS
     Route: 042
  5. OCREVUS [Suspect]
     Active Substance: OCRELIZUMAB
     Dosage: ONGOING
     Route: 042
     Dates: start: 20180626

REACTIONS (2)
  - Nasopharyngitis [Unknown]
  - Cough [Unknown]
